FAERS Safety Report 14522386 (Version 5)
Quarter: 2018Q4

REPORT INFORMATION
  Report Type: Spontaneous
  Country: US (occurrence: US)
  Receive Date: 20180212
  Receipt Date: 20181102
  Transmission Date: 20190204
  Serious: Yes (Hospitalization)
  Sender: FDA-Public Use
  Company Number: US-ACTELION-A-NJ2018-167422

PATIENT
  Age: 64 Year
  Sex: Female
  Weight: 69.84 kg

DRUGS (1)
  1. VELETRI [Suspect]
     Active Substance: EPOPROSTENOL
     Indication: PULMONARY ARTERIAL HYPERTENSION
     Dosage: 39 NG/KG, PER MIN
     Route: 042

REACTIONS (8)
  - Catheter management [Unknown]
  - Pain in extremity [Not Recovered/Not Resolved]
  - Rash generalised [Not Recovered/Not Resolved]
  - Salivary gland enlargement [Unknown]
  - Cellulitis [Unknown]
  - Pharyngitis [Unknown]
  - Pharyngeal oedema [Unknown]
  - Pain in jaw [Not Recovered/Not Resolved]
